FAERS Safety Report 21156365 (Version 2)
Quarter: 2022Q3

REPORT INFORMATION
  Report Type: Spontaneous
  Country: US (occurrence: US)
  Receive Date: 20220801
  Receipt Date: 20220825
  Transmission Date: 20221027
  Serious: Yes (Disabling, Other)
  Sender: FDA-Public Use
  Company Number: US-SA-SAC20220728002316

PATIENT
  Age: 47 Year
  Sex: Female

DRUGS (1)
  1. ZANTAC [Suspect]
     Active Substance: RANITIDINE HYDROCHLORIDE
     Indication: Dyspepsia
     Dosage: UNK UNK, QD
     Route: 048
     Dates: start: 201306, end: 202002

REACTIONS (7)
  - Breast cancer female [Unknown]
  - Disability [Unknown]
  - Anxiety [Unknown]
  - Depression [Unknown]
  - Anhedonia [Unknown]
  - Pain [Unknown]
  - Deformity [Unknown]

NARRATIVE: CASE EVENT DATE: 20170201
